FAERS Safety Report 5473189-3 (Version None)
Quarter: 2007Q3

REPORT INFORMATION
  Report Type: 
  Country: None (occurrence: None)
  Receive Date: 20070927
  Receipt Date: 20070920
  Transmission Date: 20080115
  Serious: Yes (Hospitalization)
  Sender: FDA-Public Use
  Company Number: 2007-04306

PATIENT
  Age: 9 Year
  Sex: Female

DRUGS (2)
  1. PENICILLIN G POTASSIUM [Suspect]
     Indication: PHARYNGITIS
  2. PROCAINE HYDROCHLORIDE [Suspect]
     Indication: TONSILLITIS

REACTIONS (1)
  - TOXIC EPIDERMAL NECROLYSIS [None]
